FAERS Safety Report 4548732-9 (Version None)
Quarter: 2004Q4

REPORT INFORMATION
  Report Type: 
  Country: None (occurrence: None)
  Receive Date: 20041220
  Receipt Date: 20040108
  Transmission Date: 20050328
  Serious: Yes (Hospitalization)
  Sender: FDA-Public Use
  Company Number: USA040156096

PATIENT
  Age: 44 Year
  Sex: Male
  Weight: 166 kg

DRUGS (4)
  1. HUMULIN R [Suspect]
     Dates: start: 20020101
  2. HUMULIN 70/30 [Suspect]
     Dosage: 20 U/1 DAY
     Dates: start: 20040107
  3. GLUCOPHAGE [Concomitant]
  4. GLUCOTROL [Concomitant]

REACTIONS (3)
  - BLOOD GLUCOSE INCREASED [None]
  - DIARRHOEA [None]
  - WEIGHT DECREASED [None]
